FAERS Safety Report 11788819 (Version 1)
Quarter: 2015Q4

REPORT INFORMATION
  Report Type: Spontaneous
  Country: JP (occurrence: JP)
  Receive Date: 20151201
  Receipt Date: 20151201
  Transmission Date: 20160305
  Serious: Yes (Other)
  Sender: FDA-Public Use
  Company Number: JP-CIPLA LTD.-2015JP08942

PATIENT

DRUGS (6)
  1. ETOPOSIDE. [Suspect]
     Active Substance: ETOPOSIDE
     Indication: T-CELL LYMPHOMA
     Dosage: 100 MG/M2, ON DAYS 1 AND 15
  2. IFOSFAMIDE. [Suspect]
     Active Substance: IFOSFAMIDE
     Indication: T-CELL LYMPHOMA
     Dosage: 1500 MG/M2, ON DAYS 1 AND 15
  3. METHOTREXATE [Suspect]
     Active Substance: METHOTREXATE
     Indication: T-CELL LYMPHOMA
     Dosage: 260 MG/M2, ON DAY 8
  4. PEPLOMYCIN [Suspect]
     Active Substance: PEPLOMYCIN
     Indication: T-CELL LYMPHOMA
     Dosage: 7 MG/M2, ON DAY 22
  5. CARBOPLATIN. [Suspect]
     Active Substance: CARBOPLATIN
     Indication: T-CELL LYMPHOMA
     Dosage: 100 MG/M2, ON DAYS 8 AND 22
  6. PREDNISOLONE. [Suspect]
     Active Substance: PREDNISOLONE
     Indication: T-CELL LYMPHOMA
     Dosage: 75 MG, ON DAYS 1 TO 3, 8 TO 10, 15 TO 17, AND 22 TO 24.
     Route: 048

REACTIONS (2)
  - Osteonecrosis [Unknown]
  - Stomatitis [Unknown]
